FAERS Safety Report 9339345 (Version 3)
Quarter: 2013Q4

REPORT INFORMATION
  Report Type: Report from Study
  Country: US (occurrence: US)
  Receive Date: 20130610
  Receipt Date: 20131121
  Transmission Date: 20140711
  Serious: Yes (Disabling)
  Sender: FDA-Public Use
  Company Number: US-ROCHE-1233852

PATIENT
  Age: 70 Year
  Sex: Female

DRUGS (1)
  1. LUCENTIS [Suspect]
     Indication: PRODUCT USED FOR UNKNOWN INDICATION
     Route: 065

REACTIONS (6)
  - Blindness unilateral [Unknown]
  - Pain [Unknown]
  - Anxiety [Unknown]
  - Insomnia [Recovered/Resolved]
  - Eye swelling [Unknown]
  - Periorbital contusion [Unknown]
